FAERS Safety Report 5505929-9 (Version None)
Quarter: 2007Q4

REPORT INFORMATION
  Report Type: 
  Country: None (occurrence: None)
  Receive Date: 20071103
  Receipt Date: 20071025
  Transmission Date: 20080405
  Serious: Yes (Other)
  Sender: FDA-Public Use
  Company Number: US-ELI_LILLY_AND_COMPANY-US200710006282

PATIENT
  Sex: Female

DRUGS (3)
  1. FORTEO [Suspect]
     Indication: OSTEOPOROSIS
     Dates: start: 20070725
  2. VITAMINS NOS [Concomitant]
  3. CALCIUM [Concomitant]

REACTIONS (4)
  - DEVICE MIGRATION [None]
  - LOWER LIMB FRACTURE [None]
  - PAIN IN EXTREMITY [None]
  - URINARY INCONTINENCE [None]
